FAERS Safety Report 7639363-2 (Version None)
Quarter: 2011Q3

REPORT INFORMATION
  Report Type: 
  Country: None (occurrence: None)
  Receive Date: 20110725
  Receipt Date: 20110725
  Transmission Date: 20111222
  Serious: Yes (Hospitalization)
  Sender: FDA-Public Use
  Company Number: None

PATIENT
  Sex: Male
  Weight: 80.7403 kg

DRUGS (2)
  1. TAMSULOSIN HCL [Suspect]
     Indication: BENIGN PROSTATIC HYPERPLASIA
     Dosage: 0.8 MG ONCE A DAY FALL 2010 TO DATE
  2. TAMSULOSIN HCL [Suspect]

REACTIONS (3)
  - ATRIAL FIBRILLATION [None]
  - PRODUCT SUBSTITUTION ISSUE [None]
  - ERECTION INCREASED [None]
